FAERS Safety Report 9137183 (Version 1)
Quarter: 2013Q1

REPORT INFORMATION
  Report Type: Spontaneous
  Country: JP (occurrence: JP)
  Receive Date: 20130304
  Receipt Date: 20130304
  Transmission Date: 20140127
  Serious: Yes (Hospitalization)
  Sender: FDA-Public Use
  Company Number: JP-AMGEN-JPNSP2013014148

PATIENT
  Age: 63 Year
  Sex: Female

DRUGS (7)
  1. RANMARK [Suspect]
     Indication: METASTASES TO BONE
     Route: 058
     Dates: start: 20130117, end: 20130117
  2. OXYCONTIN [Concomitant]
     Dosage: UNKNOWN
     Route: 065
  3. GENINAX [Concomitant]
     Dosage: UNKNOWN
     Route: 065
  4. LYRICA [Concomitant]
     Dosage: UNKNOWN
     Route: 065
  5. PRECIPITATED CALCIUM CARBONATE [Concomitant]
     Route: 048
     Dates: start: 20130118
  6. ONEALFA [Concomitant]
     Route: 048
     Dates: start: 20130118
  7. CALCIUM LACTATE [Concomitant]
     Dosage: UNKNOWN
     Route: 065

REACTIONS (2)
  - Altered state of consciousness [Recovering/Resolving]
  - Hypocalcaemia [Not Recovered/Not Resolved]
